FAERS Safety Report 11441473 (Version 2)
Quarter: 2015Q3

REPORT INFORMATION
  Report Type: Spontaneous
  Country: US (occurrence: US)
  Receive Date: 20150821
  Receipt Date: 20150831
  Transmission Date: 20151125
  Serious: No
  Sender: FDA-Public Use
  Company Number: US-ELI_LILLY_AND_COMPANY-US200801006507

PATIENT
  Age: 35 Year
  Sex: Female

DRUGS (6)
  1. TOPAMAX [Concomitant]
     Active Substance: TOPIRAMATE
     Indication: DEPRESSION
     Dosage: 200 MG, DAILY (1/D)
     Dates: start: 2003, end: 20080116
  2. STROVITE [Concomitant]
     Dates: start: 200704, end: 200712
  3. PRENATAL VITAMINS                  /01549301/ [Concomitant]
     Active Substance: VITAMINS
     Dosage: 1 D/F, AS NEEDED
     Dates: start: 200712
  4. CLARITIN [Concomitant]
     Active Substance: LORATADINE
     Indication: MULTIPLE ALLERGIES
     Dosage: 1 D/F, AS NEEDED
  5. CYMBALTA [Suspect]
     Active Substance: DULOXETINE HYDROCHLORIDE
     Indication: DEPRESSION
     Dosage: 20 MG, DAILY (1/D)
     Dates: start: 20050924, end: 20080123
  6. ZOLOFT [Concomitant]
     Active Substance: SERTRALINE HYDROCHLORIDE
     Dates: start: 200801

REACTIONS (2)
  - Vaginal haemorrhage [Recovered/Resolved]
  - Exposure during pregnancy [Recovered/Resolved]

NARRATIVE: CASE EVENT DATE: 200709
